FAERS Safety Report 9983280 (Version 1)
Quarter: 2014Q1

REPORT INFORMATION
  Report Type: Report from Study
  Country: US (occurrence: US)
  Receive Date: 20140307
  Receipt Date: 20140307
  Transmission Date: 20141002
  Serious: No
  Sender: FDA-Public Use
  Company Number: US-ABBVIE-13P-163-1181318-00

PATIENT
  Sex: Female

DRUGS (6)
  1. HUMIRA [Suspect]
     Indication: RHEUMATOID ARTHRITIS
     Route: 058
     Dates: start: 201302
  2. ADVAIR [Concomitant]
     Indication: ASTHMA
  3. PROAIR HFA [Concomitant]
     Indication: ASTHMA
  4. BENICAR [Concomitant]
     Indication: HYPERTENSION
  5. ZOCOR [Concomitant]
     Indication: BLOOD CHOLESTEROL INCREASED
  6. NEXIUM [Concomitant]
     Indication: GASTROOESOPHAGEAL REFLUX DISEASE

REACTIONS (2)
  - Rheumatoid arthritis [Unknown]
  - Drug ineffective [Unknown]
